FAERS Safety Report 9134845 (Version 1)
Quarter: 2013Q1

REPORT INFORMATION
  Report Type: Spontaneous
  Country: GB (occurrence: GB)
  Receive Date: 20130304
  Receipt Date: 20130304
  Transmission Date: 20140127
  Serious: Yes (Other)
  Sender: FDA-Public Use
  Company Number: GB-VERTEX PHARMACEUTICALS INC.-2013-002948

PATIENT
  Age: 27 Year
  Sex: Female

DRUGS (1)
  1. INCIVO [Suspect]
     Indication: PRODUCT USED FOR UNKNOWN INDICATION
     Route: 048

REACTIONS (5)
  - Haemolytic anaemia [Unknown]
  - Neutropenia [Unknown]
  - Pruritus [Unknown]
  - Nausea [Unknown]
  - Anorectal discomfort [Unknown]
